FAERS Safety Report 14222723 (Version 1)
Quarter: 2017Q4

REPORT INFORMATION
  Report Type: Report from Study
  Country: None (occurrence: CA)
  Receive Date: 20171125
  Receipt Date: 20171125
  Transmission Date: 20180321
  Serious: Yes (Other)
  Sender: FDA-Public Use
  Company Number: CA-ABBVIE-17K-028-2012963-00

PATIENT
  Sex: Male

DRUGS (1)
  1. HUMIRA [Suspect]
     Active Substance: ADALIMUMAB
     Indication: CROHN^S DISEASE
     Route: 058
     Dates: start: 20141017

REACTIONS (5)
  - Nausea [Not Recovered/Not Resolved]
  - Wound haemorrhage [Unknown]
  - Furuncle [Not Recovered/Not Resolved]
  - Fistula [Recovering/Resolving]
  - Musculoskeletal pain [Unknown]
